FAERS Safety Report 6897984-9 (Version None)
Quarter: 2010Q3

REPORT INFORMATION
  Report Type: 
  Country: None (occurrence: None)
  Receive Date: 20100802
  Receipt Date: 20070828
  Transmission Date: 20110219
  Serious: Yes (Other)
  Sender: FDA-Public Use
  Company Number: US-PFIZER INC-2007072263

PATIENT
  Sex: Female
  Weight: 7.3 kg

DRUGS (4)
  1. LYRICA [Suspect]
     Indication: FIBROMYALGIA
     Route: 063
     Dates: start: 20070810
  2. LYRICA [Suspect]
     Route: 063
  3. PREVACID [Concomitant]
  4. ZANTAC [Concomitant]

REACTIONS (2)
  - PYREXIA [None]
  - SOMNOLENCE [None]
